FAERS Safety Report 7038216-0 (Version None)
Quarter: 2010Q4

REPORT INFORMATION
  Report Type: 
  Country: None (occurrence: None)
  Receive Date: 20101011
  Receipt Date: 20100928
  Transmission Date: 20110411
  Serious: Yes (Congenital Anomaly)
  Sender: FDA-Public Use
  Company Number: GB-MYLANLABS-2010S1017916

PATIENT

DRUGS (2)
  1. SERTRALINE [Suspect]
     Route: 064
  2. FERROUS FUMARATE [Concomitant]
     Route: 064

REACTIONS (2)
  - CONGENITAL HYPOTHYROIDISM [None]
  - DRUG EXPOSURE DURING PREGNANCY [None]
